FAERS Safety Report 8988522 (Version 1)
Quarter: 2012Q4

REPORT INFORMATION
  Report Type: Spontaneous
  Country: US (occurrence: None)
  Receive Date: 20121224
  Receipt Date: 20121224
  Transmission Date: 20130627
  Serious: No
  Sender: FDA-Public Use
  Company Number: None

PATIENT
  Age: 35 Year
  Sex: Female
  Weight: 86.18 kg

DRUGS (1)
  1. TAMIFLU [Suspect]
     Indication: FLU
     Dates: start: 20121216, end: 20121217

REACTIONS (2)
  - Hypersensitivity [None]
  - Lip swelling [None]
